FAERS Safety Report 14509421 (Version 1)
Quarter: 2018Q1

REPORT INFORMATION
  Report Type: Spontaneous
  Country: US (occurrence: US)
  Receive Date: 20180209
  Receipt Date: 20180209
  Transmission Date: 20180509
  Serious: No
  Sender: FDA-Public Use
  Company Number: US-009507513-1802USA004045

PATIENT
  Age: 53 Year
  Sex: Male

DRUGS (2)
  1. XARELTO [Concomitant]
     Active Substance: RIVAROXABAN
  2. ZERBAXA [Suspect]
     Active Substance: CEFTOLOZANE SULFATE\TAZOBACTAM SODIUM
     Indication: CELLULITIS
     Dosage: UNK
     Route: 042
     Dates: start: 20180131

REACTIONS (4)
  - Product use in unapproved indication [Unknown]
  - Defaecation urgency [Not Recovered/Not Resolved]
  - Micturition urgency [Not Recovered/Not Resolved]
  - Nausea [Not Recovered/Not Resolved]

NARRATIVE: CASE EVENT DATE: 20180131
